FAERS Safety Report 5320842-8 (Version None)
Quarter: 2007Q2

REPORT INFORMATION
  Report Type: 
  Country: None (occurrence: None)
  Receive Date: 20070502
  Receipt Date: 20070416
  Transmission Date: 20071010
  Serious: Yes (Hospitalization, Other)
  Sender: FDA-Public Use
  Company Number: 2007US000860

PATIENT
  Age: 59 Year
  Sex: Male

DRUGS (15)
  1. PROGRAF [Suspect]
     Indication: LIVER TRANSPLANT REJECTION
     Dosage: 2 MG, BID
     Dates: start: 20060415
  2. MYCOPHENOLATE MOFETIL [Suspect]
     Indication: LIVER TRANSPLANT REJECTION
     Dosage: 1 G, BID, ORAL
     Route: 048
     Dates: start: 20060414, end: 20061030
  3. SIROLIMUS(SIROLIMUS) [Suspect]
     Indication: LIVER TRANSPLANT REJECTION
     Dosage: 2 MG, ORAL
     Route: 048
     Dates: start: 20060610, end: 20061030
  4. ANTIBIOTICS [Suspect]
     Indication: LIVER ABSCESS
  5. ACYCLOVIR [Concomitant]
  6. BACTRIM DS [Concomitant]
  7. NEXIUM [Concomitant]
  8. AMARYL [Concomitant]
  9. BENADRYL [Concomitant]
  10. VANCOMYCIN HYDROCHLORIDE [Concomitant]
  11. ZOSYN [Concomitant]
  12. CELEXA [Concomitant]
  13. LACTOBACILLUS ACIDOPHILUS (LACTOBACILLUS ACIDOPHILUS) [Concomitant]
  14. GLIPIZIDE [Concomitant]
  15. ACTIGALL [Concomitant]

REACTIONS (8)
  - ANASTOMOTIC STENOSIS [None]
  - BILE DUCT NECROSIS [None]
  - CHOLANGITIS [None]
  - CLOSTRIDIUM DIFFICILE COLITIS [None]
  - HEPATIC ARTERY OCCLUSION [None]
  - HEPATIC ARTERY THROMBOSIS [None]
  - LIVER ABSCESS [None]
  - PERIPHERAL MOTOR NEUROPATHY [None]
